FAERS Safety Report 8421060-7 (Version None)
Quarter: 2012Q2

REPORT INFORMATION
  Report Type: 
  Country: None (occurrence: None)
  Receive Date: 20120608
  Receipt Date: 20120531
  Transmission Date: 20120825
  Serious: Yes (Other)
  Sender: FDA-Public Use
  Company Number: IL-US-EMD SERONO, INC.-7106526

PATIENT
  Age: 33 Year
  Sex: Male

DRUGS (5)
  1. VITAMIN D [Concomitant]
     Indication: PRODUCT USED FOR UNKNOWN INDICATION
  2. REBIF [Suspect]
     Indication: RELAPSING-REMITTING MULTIPLE SCLEROSIS
     Route: 058
     Dates: start: 20080601, end: 20081101
  3. ELTROXIN (LEVOTHIROXINE) [Concomitant]
     Indication: HYPOTHYROIDISM
     Route: 048
  4. REBIF [Suspect]
     Route: 058
     Dates: start: 20081101, end: 20111227
  5. CALCIUM [Concomitant]
     Indication: PRODUCT USED FOR UNKNOWN INDICATION

REACTIONS (2)
  - OPTIC NEURITIS [None]
  - RETINAL EXUDATES [None]
